FAERS Safety Report 24912247 (Version 1)
Quarter: 2025Q1

REPORT INFORMATION
  Report Type: Spontaneous
  Country: US (occurrence: US)
  Receive Date: 20250131
  Receipt Date: 20250131
  Transmission Date: 20250409
  Serious: No
  Sender: BLUEPRINT MEDICINES
  Company Number: US-Blueprint Medicines Corporation-2025-AER-00173

PATIENT
  Age: 52 Year
  Sex: Female

DRUGS (1)
  1. AYVAKIT [Suspect]
     Active Substance: AVAPRITINIB
     Indication: Mastocytoma
     Route: 065
     Dates: start: 20240816

REACTIONS (6)
  - Urticaria [Unknown]
  - Pruritus [Unknown]
  - Flushing [Recovered/Resolved]
  - Pain [Recovered/Resolved]
  - Dyspnoea [Unknown]
  - Palpitations [Unknown]
